FAERS Safety Report 15437407 (Version 4)
Quarter: 2020Q1

REPORT INFORMATION
  Report Type: Spontaneous
  Country: US (occurrence: US)
  Receive Date: 20180927
  Receipt Date: 20200106
  Transmission Date: 20200409
  Serious: No
  Sender: FDA-Public Use
  Company Number: US-AMGEN-USASP2018110676

PATIENT
  Age: 77 Year
  Sex: Male

DRUGS (3)
  1. FIRMAGON [Suspect]
     Active Substance: DEGARELIX ACETATE
     Indication: PRODUCT USED FOR UNKNOWN INDICATION
     Dosage: UNK
     Route: 065
     Dates: start: 20191210
  2. XGEVA [Suspect]
     Active Substance: DENOSUMAB
     Indication: PRODUCT USED FOR UNKNOWN INDICATION
     Dosage: UNK
     Route: 065
  3. XTANDI [Suspect]
     Active Substance: ENZALUTAMIDE
     Indication: PRODUCT USED FOR UNKNOWN INDICATION
     Dosage: 40 MG, UNK
     Route: 065
     Dates: start: 201802

REACTIONS (10)
  - Movement disorder [Unknown]
  - Pain [Unknown]
  - Insomnia [Unknown]
  - Injection site movement impairment [Unknown]
  - Increased appetite [Unknown]
  - Anxiety [Unknown]
  - Injection site swelling [Unknown]
  - Dyspnoea [Unknown]
  - Injection site pain [Unknown]
  - Alopecia [Unknown]
